FAERS Safety Report 5671595-5 (Version None)
Quarter: 2008Q1

REPORT INFORMATION
  Report Type: 
  Country: None (occurrence: None)
  Receive Date: 20080313
  Receipt Date: 20080229
  Transmission Date: 20080703
  Serious: Yes (Death)
  Sender: FDA-Public Use
  Company Number: TNZDE200800027

PATIENT
  Age: 50 Year
  Sex: Female
  Weight: 100 kg

DRUGS (3)
  1. INNOHEP [Suspect]
     Indication: THROMBOSIS PROPHYLAXIS
     Dosage: 3500 IU, DAILY, SUBCUTANEOUS
     Route: 058
     Dates: start: 20080219, end: 20080223
  2. METAMIZOL (METAMIZOLE) [Concomitant]
  3. EUTHYRON [Concomitant]

REACTIONS (2)
  - PULMONARY EMBOLISM [None]
  - UNDERDOSE [None]
